FAERS Safety Report 6200179-5 (Version None)
Quarter: 2009Q2

REPORT INFORMATION
  Report Type: 
  Country: None (occurrence: None)
  Receive Date: 20090522
  Receipt Date: 20090515
  Transmission Date: 20091009
  Serious: Yes (Other)
  Sender: FDA-Public Use
  Company Number: US-PFIZER INC-2009215198

PATIENT
  Sex: Male
  Weight: 73.469 kg

DRUGS (4)
  1. LIPITOR [Interacting]
     Indication: BLOOD CHOLESTEROL INCREASED
     Route: 048
  2. TAMSULOSIN HCL [Suspect]
     Dosage: UNK
  3. COFFEE [Interacting]
     Route: 048
  4. ALCOHOL [Interacting]
     Dosage: 4 OUNCES DAILY
     Route: 048

REACTIONS (5)
  - DRUG INTERACTION [None]
  - DYSURIA [None]
  - MUSCLE SPASMS [None]
  - MYALGIA [None]
  - PROSTATOMEGALY [None]
